FAERS Safety Report 7604293-9 (Version None)
Quarter: 2011Q3

REPORT INFORMATION
  Report Type: 
  Country: None (occurrence: None)
  Receive Date: 20110712
  Receipt Date: 20110629
  Transmission Date: 20111222
  Serious: Yes (Other)
  Sender: FDA-Public Use
  Company Number: PHHY2011BR58588

PATIENT
  Sex: Female
  Weight: 73 kg

DRUGS (3)
  1. SODIUM CHLORIDE [Concomitant]
  2. FORMOTEROL FUMARATE [Suspect]
     Indication: ASTHMA
     Dosage: 3 DF, QD
     Dates: start: 20110209, end: 20110313
  3. SPIRIVA [Concomitant]
     Indication: ASTHMA
     Dosage: 2 J, QD

REACTIONS (4)
  - SWELLING [None]
  - FATIGUE [None]
  - DYSPNOEA [None]
  - MALAISE [None]
